FAERS Safety Report 11269812 (Version 1)
Quarter: 2015Q3

REPORT INFORMATION
  Report Type: Spontaneous
  Country: US (occurrence: None)
  Receive Date: 20150713
  Receipt Date: 20150713
  Transmission Date: 20151125
  Serious: Yes (Other)
  Sender: FDA-Public Use
  Company Number: None

PATIENT
  Age: 44 Year
  Sex: Male
  Weight: 121.56 kg

DRUGS (3)
  1. ALLPURINOL [Concomitant]
  2. NAPROXEN. [Concomitant]
     Active Substance: NAPROXEN
  3. AMOLDIPINE BESYLATE 5MG LEGACY PHARMACEUTICAL [Suspect]
     Active Substance: AMLODIPINE BESYLATE
     Indication: HYPERTENSION
     Route: 048
     Dates: start: 20150610, end: 20150706

REACTIONS (6)
  - Parosmia [None]
  - Rash [None]
  - Peripheral swelling [None]
  - Pain [None]
  - Amnesia [None]
  - Flushing [None]

NARRATIVE: CASE EVENT DATE: 20150702
